FAERS Safety Report 6335131-2 (Version None)
Quarter: 2009Q3

REPORT INFORMATION
  Report Type: 
  Country: None (occurrence: None)
  Receive Date: 20090831
  Receipt Date: 20090820
  Transmission Date: 20100115
  Serious: Yes (Hospitalization)
  Sender: FDA-Public Use
  Company Number: FR-ASTRAZENECA-2009SE05681

PATIENT
  Age: 13330 Day
  Sex: Female

DRUGS (7)
  1. INEXIUM [Suspect]
     Route: 048
     Dates: start: 20090213, end: 20090301
  2. VANCOMYCIN [Suspect]
     Route: 042
     Dates: start: 20090225, end: 20090310
  3. CACIT VITAMINE D3 [Suspect]
     Route: 048
     Dates: start: 20090213, end: 20090301
  4. IMUREL [Suspect]
     Dates: start: 20090201, end: 20090301
  5. ULTRA LEVURE [Suspect]
     Route: 048
     Dates: start: 20090213, end: 20090301
  6. BACTRIM [Suspect]
     Route: 048
     Dates: start: 20090301, end: 20090301
  7. SOLUPRED [Concomitant]
     Route: 048
     Dates: start: 20090213

REACTIONS (1)
  - CHOLESTATIC LIVER INJURY [None]
